FAERS Safety Report 8991779 (Version 1)
Quarter: 2012Q4

REPORT INFORMATION
  Report Type: 
  Country: ZA (occurrence: ZA)
  Receive Date: 20121231
  Receipt Date: 20121231
  Transmission Date: 20130627
  Serious: Yes (Death)
  Sender: FDA-Public Use
  Company Number: ZA-JNJFOC-20121213426

PATIENT

DRUGS (1)
  1. PALIPERIDONE [Suspect]
     Indication: SCHIZOPHRENIA
     Route: 048

REACTIONS (5)
  - Completed suicide [Fatal]
  - Extrapyramidal disorder [Unknown]
  - Insomnia [Unknown]
  - Headache [Unknown]
  - Akathisia [Unknown]
